FAERS Safety Report 5376638-4 (Version None)
Quarter: 2007Q2

REPORT INFORMATION
  Report Type: 
  Country: None (occurrence: None)
  Receive Date: 20070629
  Receipt Date: 20070619
  Transmission Date: 20071010
  Serious: Yes (Other)
  Sender: FDA-Public Use
  Company Number: GXKR2006GB07912

PATIENT
  Age: 38 Year

DRUGS (2)
  1. CITALOPRAM HYDROBROMIDE [Suspect]
     Indication: DEPRESSION
     Dosage: 30 MG, ORAL
     Route: 048
     Dates: start: 20060720
  2. ARIPIPRAZOLE [Suspect]
     Indication: SCHIZOPHRENIA
     Dosage: 20 MG, ORAL
     Route: 048
     Dates: start: 20060220, end: 20061010

REACTIONS (1)
  - AKATHISIA [None]
